FAERS Safety Report 7643128-5 (Version None)
Quarter: 2011Q3

REPORT INFORMATION
  Report Type: 
  Country: None (occurrence: None)
  Receive Date: 20110729
  Receipt Date: 20110720
  Transmission Date: 20111222
  Serious: Yes (Hospitalization, Other)
  Sender: FDA-Public Use
  Company Number: US-BIOGENIDEC-2011BI016817

PATIENT
  Age: 69 Year
  Sex: Female

DRUGS (2)
  1. TYSABRI [Suspect]
     Indication: MULTIPLE SCLEROSIS
     Route: 042
     Dates: start: 20091012, end: 20110413
  2. COUMADIN [Concomitant]
     Indication: THROMBOSIS PROPHYLAXIS
     Dates: end: 20110701

REACTIONS (7)
  - LUNG NEOPLASM [None]
  - METASTATIC NEOPLASM [None]
  - FALL [None]
  - LYMPHOMA [None]
  - CEREBROVASCULAR ACCIDENT [None]
  - BONE NEOPLASM [None]
  - UPPER GASTROINTESTINAL HAEMORRHAGE [None]
